FAERS Safety Report 4433864-6 (Version None)
Quarter: 2004Q3

REPORT INFORMATION
  Report Type: 
  Country: None (occurrence: None)
  Receive Date: 20040826
  Receipt Date: 20031006
  Transmission Date: 20050211
  Serious: Yes (Hospitalization)
  Sender: FDA-Public Use
  Company Number: JP-GLAXOSMITHKLINE-B0310969B

PATIENT
  Age: 37 Year
  Sex: Male

DRUGS (10)
  1. EPIVIR [Suspect]
     Indication: HIV INFECTION
     Dosage: 300MG PER DAY
     Route: 048
     Dates: start: 20020805
  2. STAVUDINE [Suspect]
     Indication: HIV INFECTION
     Dosage: 60MG PER DAY
     Route: 048
     Dates: start: 20020805
  3. LOPINAVIR + RITONAVIR [Suspect]
     Indication: HIV INFECTION
     Dosage: 6U PER DAY
     Route: 048
     Dates: start: 20020805
  4. CLARITHROMYCIN [Suspect]
     Indication: MYCOBACTERIUM AVIUM COMPLEX INFECTION
     Dosage: 800MG PER DAY
     Route: 048
     Dates: start: 20021010
  5. FOSCARNET SODIUM [Suspect]
     Indication: CYTOMEGALOVIRUS CHORIORETINITIS
     Route: 048
     Dates: start: 20030211, end: 20030313
  6. ETHAMBUTOL HCL [Suspect]
     Indication: MYCOBACTERIUM AVIUM COMPLEX INFECTION
     Dates: start: 20020827
  7. SPARFLOXACIN [Suspect]
     Indication: MYCOBACTERIUM AVIUM COMPLEX INFECTION
     Dosage: 300MG PER DAY
     Dates: start: 20020827
  8. VALGANCYCLOVIR [Suspect]
     Indication: CYTOMEGALOVIRUS CHORIORETINITIS
     Dosage: 900MG PER DAY
     Dates: start: 20021009, end: 20030210
  9. CIDOFOVIR [Suspect]
     Indication: CYTOMEGALOVIRUS CHORIORETINITIS
     Dosage: 330MG PER DAY
     Dates: start: 20030319
  10. PREDNISOLONE [Concomitant]
     Indication: ADRENAL INSUFFICIENCY
     Dates: start: 20020913

REACTIONS (2)
  - CYTOMEGALOVIRUS CHORIORETINITIS [None]
  - WHITE BLOOD CELL COUNT DECREASED [None]
